FAERS Safety Report 6567024-X (Version None)
Quarter: 2010Q1

REPORT INFORMATION
  Report Type: 
  Country: None (occurrence: None)
  Receive Date: 20100127
  Receipt Date: 20100113
  Transmission Date: 20100710
  Serious: Yes (Death)
  Sender: FDA-Public Use
  Company Number: 008551

PATIENT
  Age: 80 Year
  Sex: Female

DRUGS (3)
  1. PLETAL [Suspect]
     Indication: ARTERIOSCLEROSIS OBLITERANS
     Dosage: 50 MG, BID, ORAL
     Route: 048
     Dates: start: 20090730, end: 20090812
  2. PLETAL [Suspect]
     Indication: ARTERIOSCLEROSIS OBLITERANS
     Dosage: 50 MG, BID, ORAL
     Route: 048
     Dates: start: 20091120, end: 20091121
  3. MECOBALAMIN (MECOBALAMIN) [Concomitant]

REACTIONS (1)
  - CEREBRAL INFARCTION [None]
